FAERS Safety Report 17498351 (Version 1)
Quarter: 2020Q1

REPORT INFORMATION
  Report Type: Spontaneous
  Country: ES (occurrence: ES)
  Receive Date: 20200304
  Receipt Date: 20200304
  Transmission Date: 20200409
  Serious: Yes (Hospitalization)
  Sender: FDA-Public Use
  Company Number: ES-ELI_LILLY_AND_COMPANY-ES202002010929

PATIENT
  Age: 58 Year
  Sex: Male
  Weight: 60.5 kg

DRUGS (6)
  1. DIAZEPAM. [Concomitant]
     Active Substance: DIAZEPAM
     Indication: ANXIETY
     Dosage: 1 COMPRESSED EVERY 12 HOURS
     Route: 065
     Dates: start: 20190328
  2. HUMALOG [Suspect]
     Active Substance: INSULIN LISPRO
     Indication: TYPE 2 DIABETES MELLITUS
     Dosage: 12UI AT BREAKFAST, 12UI AT DINNER, 12UI AT LUNCH
     Route: 065
     Dates: start: 20190513
  3. EBYMECT [Suspect]
     Active Substance: DAPAGLIFLOZIN PROPANEDIOL\METFORMIN HYDROCHLORIDE
     Indication: TYPE 2 DIABETES MELLITUS
     Dosage: 1 COMPRESSED EVERY 12 HOURS
     Route: 065
     Dates: start: 20200121
  4. BENFEROL [Concomitant]
     Indication: VITAMIN D DEFICIENCY
     Dosage: 1 CAPSULE EVERY 15 DAYS FOR 90 DAYS
     Route: 065
     Dates: start: 20191118
  5. TRESIBA [Suspect]
     Active Substance: INSULIN DEGLUDEC
     Indication: TYPE 2 DIABETES MELLITUS
     Dosage: 60UI AT BREAKFAST
     Route: 065
     Dates: start: 20200121
  6. KARVEZIDE [Concomitant]
     Active Substance: HYDROCHLOROTHIAZIDE\IRBESARTAN
     Indication: SECONDARY HYPERTENSION
     Dosage: 1 COMPRESSED EVERY DAY
     Route: 065
     Dates: start: 20171124

REACTIONS (2)
  - Diabetic ketoacidosis [Recovering/Resolving]
  - Urinary tract candidiasis [Recovering/Resolving]

NARRATIVE: CASE EVENT DATE: 20200125
